FAERS Safety Report 14932257 (Version 2)
Quarter: 2018Q3

REPORT INFORMATION
  Report Type: Spontaneous
  Country: GR (occurrence: GR)
  Receive Date: 20180524
  Receipt Date: 20180914
  Transmission Date: 20181010
  Serious: Yes (Other)
  Sender: FDA-Public Use
  Company Number: GR-ROCHE-2128618

PATIENT
  Age: 66 Year
  Sex: Female

DRUGS (8)
  1. FOLIC ACID. [Concomitant]
     Active Substance: FOLIC ACID
     Indication: RHEUMATOID ARTHRITIS
     Route: 065
  2. RITUXIMAB. [Suspect]
     Active Substance: RITUXIMAB
     Indication: RHEUMATOID ARTHRITIS
     Route: 065
  3. ZOLEDRONIC ACID [Suspect]
     Active Substance: ZOLEDRONIC ACID
     Indication: RHEUMATOID ARTHRITIS
     Dosage: UNK
     Route: 042
  4. MAGNESIUM [Concomitant]
     Active Substance: MAGNESIUM
     Indication: RHEUMATOID ARTHRITIS
     Route: 065
  5. TERIPARATIDE [Concomitant]
     Active Substance: TERIPARATIDE
     Indication: RHEUMATOID ARTHRITIS
     Dosage: UNK
     Route: 065
  6. DENOSUMAB [Concomitant]
     Active Substance: DENOSUMAB
     Indication: RHEUMATOID ARTHRITIS
     Dosage: UNK
     Route: 065
  7. METHOTREXATE. [Concomitant]
     Active Substance: METHOTREXATE
     Indication: RHEUMATOID ARTHRITIS
     Route: 065
  8. VITAMIN D [Concomitant]
     Active Substance: CHOLECALCIFEROL
     Indication: RHEUMATOID ARTHRITIS
     Route: 065

REACTIONS (3)
  - Gait disturbance [Recovered/Resolved]
  - Periprosthetic fracture [Recovered/Resolved]
  - Arthralgia [Recovered/Resolved]
